FAERS Safety Report 4992847-8 (Version None)
Quarter: 2006Q1

REPORT INFORMATION
  Report Type: 
  Country: None (occurrence: None)
  Receive Date: 20060315
  Receipt Date: 20060124
  Transmission Date: 20060701
  Serious: No
  Sender: FDA-Public Use
  Company Number: 2006RL000017

PATIENT
  Age: 17 Year
  Sex: Male
  Weight: 58.9676 kg

DRUGS (1)
  1. OMACOR [Suspect]
     Indication: MOOD ALTERED
     Dosage: 2 GM;BID;PO
     Route: 048
     Dates: start: 20060119

REACTIONS (2)
  - FATIGUE [None]
  - SOMNOLENCE [None]
